FAERS Safety Report 24326579 (Version 1)
Quarter: 2024Q3

REPORT INFORMATION
  Report Type: Spontaneous
  Country: GB (occurrence: GB)
  Receive Date: 20240917
  Receipt Date: 20240917
  Transmission Date: 20241016
  Serious: Yes (Other)
  Sender: AUROBINDO
  Company Number: GB-MHRA-MIDB-e65472dd-8017-4eee-ad32-63f0d3d199b4

PATIENT
  Age: 86 Year

DRUGS (10)
  1. DOXAZOSIN [Suspect]
     Active Substance: DOXAZOSIN MESYLATE
     Indication: Product used for unknown indication
     Dosage: 12 MILLIGRAM, ONCE A DAY
     Route: 065
  2. POLYETHYLENE GLYCOL 3350\POTASSIUM CHLORIDE\SODIUM BICARBONATE\SODIUM [Concomitant]
     Active Substance: POLYETHYLENE GLYCOL 3350\POTASSIUM CHLORIDE\SODIUM BICARBONATE\SODIUM CHLORIDE
     Indication: Constipation
     Dosage: UNK (ORANGE LEMON AND LIME ORAL POWDER SACHETS 1 TWICE DAILY WHEN REQUIRED)
     Route: 065
  3. AMLODIPINE [Concomitant]
     Active Substance: AMLODIPINE BESYLATE
     Indication: Product used for unknown indication
     Dosage: UNK
     Route: 065
  4. Spikevax XBB.1.5 [Concomitant]
     Indication: Product used for unknown indication
     Dosage: UNK (SPIKEVAX XBB.1.5 COVID-19 MRNA VACCINE)
     Route: 065
  5. SIMVASTATIN [Concomitant]
     Active Substance: SIMVASTATIN
     Indication: Product used for unknown indication
     Dosage: 40 MILLIGRAM, AT BED TIME (40 MG TABLETS ONE TO BE TAKEN AT NIGHT)
     Route: 065
  6. DICLOFENAC DIETHYLAMINE [Concomitant]
     Active Substance: DICLOFENAC DIETHYLAMINE
     Indication: Product used for unknown indication
     Dosage: 1.16 PERCENT (1.16% GEL TO USE THREE TO FOUR TIMES A DAY  )
     Route: 065
  7. ORANGE [Concomitant]
     Active Substance: ORANGE
     Indication: Product used for unknown indication
     Dosage: UNK
     Route: 065
  8. ACETAMINOPHEN [Concomitant]
     Active Substance: ACETAMINOPHEN
     Indication: Product used for unknown indication
     Dosage: UNK
     Route: 065
  9. ATORVASTATIN [Concomitant]
     Active Substance: ATORVASTATIN
     Indication: Product used for unknown indication
     Dosage: UNK
     Route: 065
  10. TRAMADOL [Concomitant]
     Active Substance: TRAMADOL\TRAMADOL HYDROCHLORIDE
     Indication: Product used for unknown indication
     Dosage: 50 MILLIGRAM (50 MG CAPSULES ONE TWICE A DAY  CAN BE TAKEN ALONG SIDE PARACETAMOL. AS REQUIRED.)
     Route: 065

REACTIONS (1)
  - Orthostatic hypotension [Unknown]
